FAERS Safety Report 22098435 (Version 1)
Quarter: 2023Q1

REPORT INFORMATION
  Report Type: Report from Study
  Country: US (occurrence: None)
  Receive Date: 20230315
  Receipt Date: 20230315
  Transmission Date: 20230417
  Serious: Yes (Other)
  Sender: FDA-Public Use
  Company Number: US-ROCHE-3309036

PATIENT

DRUGS (3)
  1. ATEZOLIZUMAB [Suspect]
     Active Substance: ATEZOLIZUMAB
     Indication: Renal cell carcinoma
     Dosage: MOST RECENT DOSE ADMINISTERED WAS ON 01/JUL/2022
     Route: 041
     Dates: start: 20211203
  2. BEVACIZUMAB [Suspect]
     Active Substance: BEVACIZUMAB
     Indication: Renal cell carcinoma
     Dosage: ON 01/JUL/2022 MOST RECENT DOSE ADMINISTERED
     Route: 042
     Dates: start: 20211203
  3. ENTINOSTAT [Suspect]
     Active Substance: ENTINOSTAT
     Indication: Renal cell carcinoma
     Dosage: 1, 3, OR 5 MG DEPENDING UPON PHASE?ON 01/JUL/2022 MOST RECENT DOSE ADMINISTERED
     Route: 048
     Dates: start: 20211203

REACTIONS (1)
  - Metastasis [Unknown]
